FAERS Safety Report 9538261 (Version 1)
Quarter: 2013Q3

REPORT INFORMATION
  Report Type: Spontaneous
  Country: US (occurrence: US)
  Receive Date: 20130920
  Receipt Date: 20130920
  Transmission Date: 20140515
  Serious: Yes (Hospitalization)
  Sender: FDA-Public Use
  Company Number: US-MERCK-1309USA006467

PATIENT
  Sex: Male

DRUGS (5)
  1. VICTRELIS [Suspect]
     Indication: CHRONIC HEPATITIS C
     Dosage: 200 MG, THREE TIMES DAILY
     Route: 048
     Dates: start: 201302
  2. VICTRELIS [Suspect]
     Indication: COMA HEPATIC
  3. PEGINTRON [Suspect]
  4. RIBASPHERE [Suspect]
  5. SUMATRIPTAN SUCCINATE [Concomitant]
     Route: 048

REACTIONS (8)
  - Hypotension [Unknown]
  - White blood cell count decreased [Unknown]
  - Platelet count decreased [Unknown]
  - Hair disorder [Unknown]
  - Alopecia [Unknown]
  - Dysgeusia [Unknown]
  - Asthenia [Unknown]
  - Dry skin [Unknown]
